FAERS Safety Report 6064785-3 (Version None)
Quarter: 2009Q1

REPORT INFORMATION
  Report Type: 
  Country: None (occurrence: None)
  Receive Date: 20090203
  Receipt Date: 20090203
  Transmission Date: 20090719
  Serious: Yes (Life-Threatening, Hospitalization)
  Sender: FDA-Public Use
  Company Number: None

PATIENT
  Age: 79 Year
  Sex: Female
  Weight: 68.0396 kg

DRUGS (1)
  1. NEO-SYNEPHRINE [Suspect]
     Indication: CATARACT OPERATION
     Dates: start: 20070904, end: 20070904

REACTIONS (6)
  - BLOOD PRESSURE INCREASED [None]
  - CEREBROVASCULAR ACCIDENT [None]
  - COMA [None]
  - DRUG HYPERSENSITIVITY [None]
  - MEMORY IMPAIRMENT [None]
  - PROCEDURAL COMPLICATION [None]
